FAERS Safety Report 8360890-7 (Version None)
Quarter: 2012Q2

REPORT INFORMATION
  Report Type: 
  Country: None (occurrence: None)
  Receive Date: 20120515
  Receipt Date: 20120509
  Transmission Date: 20120825
  Serious: Yes (Hospitalization, Other)
  Sender: FDA-Public Use
  Company Number: US-ROCHE-1067373

PATIENT
  Sex: Male

DRUGS (1)
  1. ZELBORAF [Suspect]
     Indication: PRODUCT USED FOR UNKNOWN INDICATION
     Route: 065

REACTIONS (8)
  - THROMBOSIS [None]
  - FATIGUE [None]
  - PYREXIA [None]
  - DECREASED APPETITE [None]
  - RASH [None]
  - AGEUSIA [None]
  - OESOPHAGEAL STENOSIS [None]
  - ARTHRALGIA [None]
